FAERS Safety Report 8826272 (Version 1)
Quarter: 2012Q4

REPORT INFORMATION
  Report Type: 
  Country: DE (occurrence: DE)
  Receive Date: 20121005
  Receipt Date: 20121005
  Transmission Date: 20130627
  Serious: Yes (Death)
  Sender: FDA-Public Use
  Company Number: DE-BRISTOL-MYERS SQUIBB COMPANY-16995748

PATIENT
  Age: 27 Year
  Sex: Male

DRUGS (1)
  1. CISPLATIN [Suspect]
     Indication: TONSIL CANCER
     Dosage: dose reduced 50%

REACTIONS (3)
  - Haematotoxicity [Fatal]
  - Pneumonia [Fatal]
  - Malignant neoplasm progression [Fatal]
